FAERS Safety Report 15052943 (Version 1)
Quarter: 2018Q3

REPORT INFORMATION
  Report Type: Spontaneous
  Country: FR (occurrence: FR)
  Receive Date: 20180622
  Receipt Date: 20180622
  Transmission Date: 20181010
  Serious: Yes (Hospitalization, Other)
  Sender: FDA-Public Use
  Company Number: FR-SAKK-2018SA154265AA

PATIENT
  Age: 15 Year
  Sex: Male
  Weight: 43.9 kg

DRUGS (10)
  1. IMETH [METHOTREXATE SODIUM] [Suspect]
     Active Substance: METHOTREXATE SODIUM
     Indication: ADJUVANT THERAPY
     Dosage: 25 MG, QW
     Route: 058
     Dates: start: 20180509
  2. LANZOR [Concomitant]
     Active Substance: LANSOPRAZOLE
     Indication: PRODUCT USED FOR UNKNOWN INDICATION
  3. CYTARABINE. [Suspect]
     Active Substance: CYTARABINE
     Indication: LEUKAEMIA RECURRENT
     Dosage: 30 MG, TOTAL
     Route: 037
     Dates: start: 20180416
  4. PURINETHOL [Concomitant]
     Active Substance: MERCAPTOPURINE
     Indication: ADJUVANT THERAPY
  5. METHOTREXATE BIODIM [Suspect]
     Active Substance: METHOTREXATE
     Indication: LEUKAEMIA RECURRENT
     Dosage: 12 MG, TOTAL
     Route: 037
     Dates: start: 20180416
  6. KEPPRA [Concomitant]
     Active Substance: LEVETIRACETAM
     Indication: ADJUVANT THERAPY
  7. DEPO?MEDROL + LIDOCAINE [Suspect]
     Active Substance: LIDOCAINE HYDROCHLORIDE\METHYLPREDNISOLONE ACETATE
     Indication: LEUKAEMIA RECURRENT
     Route: 037
     Dates: start: 20180416
  8. L THYROXINE SERB [Concomitant]
     Active Substance: LEVOTHYROXINE SODIUM
     Indication: THYROID DISORDER
  9. FASTURTEC [Suspect]
     Active Substance: RASBURICASE
     Indication: HYPERURICAEMIA
     Dosage: 9 MG, TOTAL
     Route: 042
     Dates: start: 20180510, end: 20180510
  10. BACTRIM [Suspect]
     Active Substance: SULFAMETHOXAZOLE\TRIMETHOPRIM
     Indication: ANTIBIOTIC PROPHYLAXIS
     Route: 048
     Dates: start: 20180509, end: 20180512

REACTIONS (2)
  - Respiratory distress [Recovered/Resolved]
  - Methaemoglobinaemia [Recovered/Resolved]

NARRATIVE: CASE EVENT DATE: 20180510
